FAERS Safety Report 22646515 (Version 1)
Quarter: 2023Q2

REPORT INFORMATION
  Report Type: Spontaneous
  Country: US (occurrence: US)
  Receive Date: 20230627
  Receipt Date: 20230627
  Transmission Date: 20230721
  Serious: Yes (Hospitalization)
  Sender: FDA-Public Use
  Company Number: US-JNJFOC-20230648541

PATIENT
  Age: 35 Year
  Sex: Female

DRUGS (1)
  1. ACETAMINOPHEN [Suspect]
     Active Substance: ACETAMINOPHEN
     Indication: Product used for unknown indication
     Route: 065

REACTIONS (8)
  - Fanconi syndrome acquired [Unknown]
  - Renal tubular necrosis [Recovered/Resolved]
  - Acute hepatic failure [Unknown]
  - Respiratory failure [Unknown]
  - Encephalopathy [Unknown]
  - Coagulopathy [Unknown]
  - Metabolic acidosis [Unknown]
  - Overdose [Unknown]
